FAERS Safety Report 20874787 (Version 1)
Quarter: 2022Q2

REPORT INFORMATION
  Report Type: Spontaneous
  Country: FR (occurrence: FR)
  Receive Date: 20220526
  Receipt Date: 20220526
  Transmission Date: 20220721
  Serious: Yes (Other)
  Sender: FDA-Public Use
  Company Number: FR-AFSSAPS-AVNT20220303

PATIENT
  Age: 31 Year
  Sex: Male

DRUGS (1)
  1. PREGABALIN [Suspect]
     Active Substance: PREGABALIN
     Indication: Product used for unknown indication
     Dosage: AT LEAST 900 MG/DAY FOR SEVERAL MONTHS ()
     Route: 065

REACTIONS (1)
  - Drug use disorder [Not Recovered/Not Resolved]
